FAERS Safety Report 5918332-4 (Version None)
Quarter: 2008Q4

REPORT INFORMATION
  Report Type: 
  Country: None (occurrence: None)
  Receive Date: 20081010
  Receipt Date: 20080927
  Transmission Date: 20090506
  Serious: Yes (Hospitalization)
  Sender: FDA-Public Use
  Company Number: 234117J08USA

PATIENT
  Age: 54 Year
  Sex: Female
  Weight: 83 kg

DRUGS (5)
  1. REBIF [Suspect]
     Indication: MULTIPLE SCLEROSIS
     Dosage: 44 MCG, 3 IN 1 WEEKS, SUBCUTANEOUS
     Route: 058
     Dates: start: 20080227
  2. MANY MEDICATIONS (ALL OTHER THERAPEUTIC PRODUCTS) [Concomitant]
  3. REQUIP [Concomitant]
  4. MIRAPEX [Concomitant]
  5. LIDODERM PATCHES(LIDOCAINE/00033401/) [Concomitant]

REACTIONS (3)
  - COLON CANCER [None]
  - DEHYDRATION [None]
  - DIARRHOEA [None]
